FAERS Safety Report 9529487 (Version 2)
Quarter: 2013Q4

REPORT INFORMATION
  Report Type: Spontaneous
  Country: US (occurrence: US)
  Receive Date: 20130917
  Receipt Date: 20131121
  Transmission Date: 20140711
  Serious: Yes (Hospitalization)
  Sender: FDA-Public Use
  Company Number: US-BAYER-2013-111244

PATIENT
  Age: 22 Year
  Sex: Female
  Weight: 63.49 kg

DRUGS (6)
  1. MIRENA [Suspect]
     Indication: CONTRACEPTION
     Dosage: 20 MCG/24HR, CONT
     Route: 015
     Dates: start: 200909, end: 20110705
  2. ALBUTEROL [Concomitant]
     Indication: ASTHMA
     Dosage: UNK
     Dates: start: 2000
  3. FLOVENT [Concomitant]
  4. SEROQUEL [Concomitant]
  5. ABILIFY [Concomitant]
  6. PROVERA [Concomitant]

REACTIONS (6)
  - Device dislocation [None]
  - Peritoneal adhesions [None]
  - Injury [None]
  - Abdominal pain [None]
  - Emotional distress [None]
  - Device issue [None]
